FAERS Safety Report 4698310-6 (Version None)
Quarter: 2005Q2

REPORT INFORMATION
  Report Type: 
  Country: None (occurrence: None)
  Receive Date: 20050621
  Receipt Date: 20050607
  Transmission Date: 20051028
  Serious: Yes (Hospitalization)
  Sender: FDA-Public Use
  Company Number: 31415

PATIENT
  Age: 79 Year
  Sex: Female

DRUGS (4)
  1. AZOPT [Suspect]
     Indication: GLAUCOMA
     Dosage: 1 GTT BID OPHT
     Route: 047
     Dates: start: 20050504
  2. PERINODOPRIL [Concomitant]
  3. AMLODIPINE [Concomitant]
  4. RANITIDINE [Concomitant]

REACTIONS (3)
  - ANOREXIA [None]
  - DRY MOUTH [None]
  - DYSPHAGIA [None]
